FAERS Safety Report 4947844-5 (Version None)
Quarter: 2006Q1

REPORT INFORMATION
  Report Type: 
  Country: None (occurrence: None)
  Receive Date: 20060320
  Receipt Date: 20060222
  Transmission Date: 20060701
  Serious: Yes (Life-Threatening)
  Sender: FDA-Public Use
  Company Number: FR-AVENTIS-200610733FR

PATIENT
  Age: 78 Year
  Sex: Female

DRUGS (9)
  1. KETEK [Suspect]
     Indication: BRONCHITIS
     Route: 048
     Dates: start: 20060207, end: 20060207
  2. UNICORDIUM [Suspect]
     Route: 048
     Dates: start: 19990101, end: 20060207
  3. CORVASAL [Concomitant]
     Route: 048
  4. TORENTAL [Concomitant]
     Route: 048
  5. PREVISCAN [Concomitant]
     Route: 048
  6. TAHOR [Concomitant]
     Route: 048
  7. LEVOTHYROX [Concomitant]
     Route: 048
  8. FOSAMAX [Concomitant]
     Route: 048
  9. TRANSIPEG [Concomitant]
     Route: 048

REACTIONS (10)
  - AGITATION [None]
  - AMNESIA [None]
  - BLOOD SODIUM DECREASED [None]
  - BUNDLE BRANCH BLOCK RIGHT [None]
  - ELECTROCARDIOGRAM QT CORRECTED INTERVAL PROLONGED [None]
  - ELECTROCARDIOGRAM QT PROLONGED [None]
  - LOSS OF CONSCIOUSNESS [None]
  - MALAISE [None]
  - TORSADE DE POINTES [None]
  - VENTRICULAR EXTRASYSTOLES [None]
